FAERS Safety Report 4352194-4 (Version None)
Quarter: 2004Q2

REPORT INFORMATION
  Report Type: 
  Country: None (occurrence: None)
  Receive Date: 20040428
  Receipt Date: 20040413
  Transmission Date: 20050107
  Serious: Yes (Hospitalization, Other)
  Sender: FDA-Public Use
  Company Number: JP_040202589

PATIENT
  Age: 22 Year
  Sex: Male
  Weight: 59 kg

DRUGS (13)
  1. ZYPREXA [Suspect]
     Indication: SCHIZOPHRENIA, CATATONIC TYPE
     Dosage: 10 MG/1 DAY
     Dates: start: 20021126
  2. TASMOLIN (BIPERIDEN) [Concomitant]
  3. ROHYPNOL (FLUNITRAZEPAM) [Concomitant]
  4. NEO F LASE [Concomitant]
  5. SEROQUEL [Concomitant]
  6. NITRAZEPAM [Concomitant]
  7. CHLORPROMAZINE HCL [Concomitant]
  8. MAGNESIUM OXIDE [Concomitant]
  9. VEGETAMIN B [Concomitant]
  10. LEVOTOMIN (LEVOMEPROMAZINE MALEATE) [Concomitant]
  11. HALOPERIDOL [Concomitant]
  12. AMOBAN (ZOPICLONE) [Concomitant]
  13. PROLMON (PROTOPORPHYRIN DISODIUM) [Concomitant]

REACTIONS (9)
  - ALANINE AMINOTRANSFERASE INCREASED [None]
  - BLOOD CREATINE PHOSPHOKINASE INCREASED [None]
  - ENTERITIS INFECTIOUS [None]
  - GAMMA-GLUTAMYLTRANSFERASE INCREASED [None]
  - GASTRIC ULCER [None]
  - HAEMORRHOIDS [None]
  - ILEUS [None]
  - NASOPHARYNGITIS [None]
  - URINARY RETENTION [None]
